FAERS Safety Report 25313528 (Version 1)
Quarter: 2025Q2

REPORT INFORMATION
  Report Type: Spontaneous
  Country: US (occurrence: None)
  Receive Date: 20250514
  Receipt Date: 20250514
  Transmission Date: 20250716
  Serious: Yes (Other)
  Sender: FDA-CTU
  Company Number: None

PATIENT
  Age: 73 Year
  Sex: Male

DRUGS (1)
  1. GAMMAGARD [Suspect]
     Active Substance: HUMAN IMMUNOGLOBULIN G
     Dosage: FREQUENCY : MONTHLY;?
     Dates: start: 20250509

REACTIONS (5)
  - Peripheral swelling [None]
  - Pain in extremity [None]
  - Inflammation [None]
  - Infection [None]
  - Thrombosis [None]

NARRATIVE: CASE EVENT DATE: 20250512
